FAERS Safety Report 6884562-0 (Version None)
Quarter: 2010Q3

REPORT INFORMATION
  Report Type: 
  Country: None (occurrence: None)
  Receive Date: 20100729
  Receipt Date: 20070712
  Transmission Date: 20110219
  Serious: Yes (Death)
  Sender: FDA-Public Use
  Company Number: US-PFIZER INC-2007058438

PATIENT
  Sex: Female
  Weight: 61.2 kg

DRUGS (2)
  1. CELEBREX [Suspect]
     Indication: ARTHRITIS
     Route: 048
     Dates: start: 20030101
  2. VIOXX [Concomitant]

REACTIONS (1)
  - CARDIAC FAILURE [None]
